FAERS Safety Report 5197687-5 (Version None)
Quarter: 2006Q4

REPORT INFORMATION
  Report Type: 
  Country: None (occurrence: None)
  Receive Date: 20061227
  Receipt Date: 20061215
  Transmission Date: 20070319
  Serious: Yes (Death, Other)
  Sender: FDA-Public Use
  Company Number: 2006137443

PATIENT
  Age: 69 Year
  Sex: Female

DRUGS (7)
  1. ALDACTONE [Suspect]
     Indication: ASCITES
     Dosage: 50 MG (50 MG, 1 IN 1 D), ORAL
     Route: 048
     Dates: start: 20061003, end: 20061123
  2. LANSOPRAZOLE [Suspect]
     Indication: GASTRIC ULCER
     Dosage: 30 MG (30 MG, 1 IN 1 D), ORAL
     Route: 048
     Dates: start: 20061004, end: 20061111
  3. LANSOPRAZOLE [Suspect]
     Indication: GASTRIC ULCER
     Dosage: 30 MG (30 MG, 1 IN 1 D), ORAL
     Route: 048
     Dates: start: 20061003, end: 20061123
  4. FUROSEMIDE [Concomitant]
  5. FUROSEMIDE [Concomitant]
  6. PALUNOTOL (PLAUNOTOL) [Concomitant]
  7. LIVACT (AMINO ACIDS NOS) [Concomitant]

REACTIONS (6)
  - ALANINE AMINOTRANSFERASE INCREASED [None]
  - ASPARTATE AMINOTRANSFERASE INCREASED [None]
  - CONDITION AGGRAVATED [None]
  - GASTRIC ULCER [None]
  - HEPATIC FUNCTION ABNORMAL [None]
  - SHOCK HAEMORRHAGIC [None]
